FAERS Safety Report 23236976 (Version 5)
Quarter: 2024Q1

REPORT INFORMATION
  Report Type: Report from Study
  Country: US (occurrence: US)
  Receive Date: 20231128
  Receipt Date: 20240307
  Transmission Date: 20240410
  Serious: Yes (Other)
  Sender: FDA-Public Use
  Company Number: US-TAKEDA-2023TUS113986

PATIENT
  Age: 64 Year
  Sex: Female

DRUGS (16)
  1. TEDUGLUTIDE [Suspect]
     Active Substance: TEDUGLUTIDE
     Indication: Short-bowel syndrome
     Dosage: 5.3 MILLIGRAM, QD
     Route: 042
     Dates: start: 20210120, end: 20210215
  2. TEDUGLUTIDE [Suspect]
     Active Substance: TEDUGLUTIDE
     Indication: Short-bowel syndrome
     Dosage: 5.3 MILLIGRAM, QD
     Route: 042
     Dates: start: 20210120, end: 20210215
  3. TEDUGLUTIDE [Suspect]
     Active Substance: TEDUGLUTIDE
     Indication: Short-bowel syndrome
     Dosage: 5.3 MILLIGRAM, QD
     Route: 042
     Dates: start: 20210120, end: 20210215
  4. TEDUGLUTIDE [Suspect]
     Active Substance: TEDUGLUTIDE
     Indication: Short-bowel syndrome
     Dosage: 5.3 MILLIGRAM, QD
     Route: 042
     Dates: start: 20210120, end: 20210215
  5. TEDUGLUTIDE [Suspect]
     Active Substance: TEDUGLUTIDE
     Dosage: 5.3 MILLIGRAM, QD
     Route: 042
     Dates: start: 20210402, end: 20210526
  6. TEDUGLUTIDE [Suspect]
     Active Substance: TEDUGLUTIDE
     Dosage: 5.3 MILLIGRAM, QD
     Route: 042
     Dates: start: 20210402, end: 20210526
  7. TEDUGLUTIDE [Suspect]
     Active Substance: TEDUGLUTIDE
     Dosage: 5.3 MILLIGRAM, QD
     Route: 042
     Dates: start: 20210402, end: 20210526
  8. TEDUGLUTIDE [Suspect]
     Active Substance: TEDUGLUTIDE
     Dosage: 5.3 MILLIGRAM, QD
     Route: 042
     Dates: start: 20210402, end: 20210526
  9. TEDUGLUTIDE [Suspect]
     Active Substance: TEDUGLUTIDE
     Dosage: 4.5 MILLIGRAM, 4/WEEK
     Route: 042
     Dates: start: 20210830, end: 20211123
  10. TEDUGLUTIDE [Suspect]
     Active Substance: TEDUGLUTIDE
     Dosage: 4.5 MILLIGRAM, 4/WEEK
     Route: 042
     Dates: start: 20210830, end: 20211123
  11. TEDUGLUTIDE [Suspect]
     Active Substance: TEDUGLUTIDE
     Dosage: 4.5 MILLIGRAM, 4/WEEK
     Route: 042
     Dates: start: 20210830, end: 20211123
  12. TEDUGLUTIDE [Suspect]
     Active Substance: TEDUGLUTIDE
     Dosage: 4.5 MILLIGRAM, 4/WEEK
     Route: 042
     Dates: start: 20210830, end: 20211123
  13. MAGNESIUM SULFATE [Concomitant]
     Active Substance: MAGNESIUM SULFATE\MAGNESIUM SULFATE HEPTAHYDRATE
     Indication: Hypomagnesaemia
     Dosage: 2 GRAM, SINGLE
     Route: 042
     Dates: start: 20231112, end: 20231112
  14. MICAFUNGIN [Concomitant]
     Active Substance: MICAFUNGIN SODIUM
     Indication: Vascular device infection
     Dosage: 100 MILLIGRAM, QD
     Route: 042
     Dates: start: 20231109, end: 20231113
  15. FLAGYL [Concomitant]
     Active Substance: METRONIDAZOLE\METRONIDAZOLE HYDROCHLORIDE
     Indication: Vascular device infection
     Dosage: 500 MILLIGRAM, BID
     Route: 042
     Dates: start: 20231110, end: 20231111
  16. VANCOMYCIN [Concomitant]
     Active Substance: VANCOMYCIN
     Indication: Vascular device infection
     Dosage: 1.75 GRAM, SINGLE
     Route: 042
     Dates: start: 20231111, end: 20231111

REACTIONS (4)
  - Acute kidney injury [Recovered/Resolved]
  - Hypomagnesaemia [Recovered/Resolved]
  - Nausea [Recovered/Resolved]
  - Vomiting [Recovered/Resolved]

NARRATIVE: CASE EVENT DATE: 20230601
